FAERS Safety Report 6290747-7 (Version None)
Quarter: 2009Q3

REPORT INFORMATION
  Report Type: 
  Country: None (occurrence: None)
  Receive Date: 20090730
  Receipt Date: 20090720
  Transmission Date: 20100115
  Serious: Yes (Other)
  Sender: FDA-Public Use
  Company Number: PHEH2009US07831

PATIENT
  Sex: Female

DRUGS (4)
  1. DIOVAN HCT [Suspect]
  2. SYNTHROID [Concomitant]
  3. ACIPHEX [Concomitant]
  4. VALIUM [Concomitant]

REACTIONS (2)
  - ABNORMAL LOSS OF WEIGHT [None]
  - HYPOTENSION [None]
